FAERS Safety Report 12715779 (Version 2)
Quarter: 2016Q3

REPORT INFORMATION
  Report Type: Spontaneous
  Country: US (occurrence: US)
  Receive Date: 20160906
  Receipt Date: 20160909
  Transmission Date: 20161109
  Serious: No
  Sender: FDA-Public Use
  Company Number: ALCN2016US006144

PATIENT
  Sex: Female

DRUGS (2)
  1. ILEVRO [Concomitant]
     Active Substance: NEPAFENAC
     Indication: PROPHYLAXIS
     Dosage: 19 GTT, QD
     Route: 047
     Dates: start: 20160903
  2. PREDNISOLONE ACETATE. [Suspect]
     Active Substance: PREDNISOLONE ACETATE
     Indication: PROPHYLAXIS
     Dosage: 1 GTT, TID
     Route: 047
     Dates: start: 20160803

REACTIONS (2)
  - Alopecia [Not Recovered/Not Resolved]
  - Condition aggravated [Not Recovered/Not Resolved]
